FAERS Safety Report 18109448 (Version 1)
Quarter: 2020Q3

REPORT INFORMATION
  Report Type: Spontaneous
  Country: US (occurrence: US)
  Receive Date: 20200804
  Receipt Date: 20200804
  Transmission Date: 20201103
  Serious: Yes (Death)
  Sender: FDA-Public Use
  Company Number: None

PATIENT
  Age: 60 Year
  Sex: Female
  Weight: 100 kg

DRUGS (18)
  1. FENTANYL CONTINUOUS INFUSION [Concomitant]
     Active Substance: FENTANYL
  2. PROPOFOL CONTINOUS INFUSION [Concomitant]
  3. NOREPINEPHRINE CONTINOUS INFUSION [Concomitant]
  4. CEFAZOLIN 1G IV Q12H [Concomitant]
     Dates: start: 20200728, end: 20200731
  5. VORICONAZOLE 400 MG IV Q12H [Concomitant]
     Dates: start: 20200722, end: 20200731
  6. QUETIAPINE 400 MG PO BID [Concomitant]
     Dates: start: 20200722, end: 20200731
  7. PRECEDEX CONTINUOUS INFUSION [Concomitant]
  8. PROTONIX 40 MG IV Q12H [Concomitant]
     Dates: start: 20200622, end: 20200731
  9. HEPARIN 5000 UNITS SUB Q Q12H [Concomitant]
     Dates: start: 20200729, end: 20200731
  10. REMDESIVIR. [Suspect]
     Active Substance: REMDESIVIR
     Indication: COVID-19
     Dates: start: 20200613, end: 20200623
  11. KETAMINE CONTINUOUS INFUSION [Concomitant]
  12. ASPIRIN 81 MG PO DAILY [Concomitant]
     Dates: start: 20200627, end: 20200731
  13. NYSTATIN 100,000 UNITS 2 TIMES TOPICALLY DAILY [Concomitant]
     Dates: start: 20200625, end: 20200731
  14. SODIUM BICARB 1300 MG 4X/DAY PO [Concomitant]
     Dates: start: 20200728, end: 20200731
  15. INSULIN CONTINUOUS INFUSION [Concomitant]
  16. MIDAZOLAM CONTINUOUS INFUSION [Concomitant]
  17. VASOPRESSIN CONTINOUS INFUSION [Concomitant]
  18. METHYLPREDNISOLONE 10 MG IV Q24H [Concomitant]
     Dates: start: 20200730, end: 20200731

REACTIONS (2)
  - Disease complication [None]
  - Renal failure [None]

NARRATIVE: CASE EVENT DATE: 20200731
